FAERS Safety Report 5405466-6 (Version None)
Quarter: 2007Q3

REPORT INFORMATION
  Report Type: 
  Country: None (occurrence: None)
  Receive Date: 20070803
  Receipt Date: 20070723
  Transmission Date: 20080115
  Serious: Yes (Other)
  Sender: FDA-Public Use
  Company Number: FR-PFIZER INC-2007052086

PATIENT
  Sex: Female
  Weight: 44 kg

DRUGS (6)
  1. ZOLOFT [Suspect]
     Indication: DEPRESSION
     Route: 048
  2. ZOLOFT [Interacting]
     Indication: PERSONALITY DISORDER
  3. CANNABIS [Interacting]
  4. LYSANXIA [Concomitant]
     Indication: DEPRESSION
     Dosage: DAILY DOSE:10MG
     Route: 048
  5. LYSANXIA [Concomitant]
     Indication: PERSONALITY DISORDER
  6. VARNOLINE [Concomitant]
     Indication: CONTRACEPTION
     Route: 048

REACTIONS (6)
  - DRUG INTERACTION [None]
  - DYSURIA [None]
  - LOSS OF CONSCIOUSNESS [None]
  - MUSCLE SPASMS [None]
  - PARAESTHESIA [None]
  - SYNCOPE [None]
